FAERS Safety Report 5404244-1 (Version None)
Quarter: 2007Q3

REPORT INFORMATION
  Report Type: 
  Country: None (occurrence: None)
  Receive Date: 20070802
  Receipt Date: 20070720
  Transmission Date: 20080115
  Serious: Yes (Hospitalization)
  Sender: FDA-Public Use
  Company Number: DE-GENENTECH-245417

PATIENT
  Sex: Female

DRUGS (2)
  1. HERCEPTIN [Suspect]
     Indication: BREAST CANCER
     Dates: start: 20070717, end: 20070717
  2. ANTIDIABETIC DRUG NOS [Concomitant]
     Indication: DIABETES MELLITUS

REACTIONS (5)
  - ABDOMINAL PAIN UPPER [None]
  - CARDIOVASCULAR DISORDER [None]
  - DIARRHOEA [None]
  - HYPERSENSITIVITY [None]
  - PYREXIA [None]
